FAERS Safety Report 20017324 (Version 1)
Quarter: 2021Q4

REPORT INFORMATION
  Report Type: Report from Study
  Country: PE (occurrence: PE)
  Receive Date: 20211030
  Receipt Date: 20211030
  Transmission Date: 20220303
  Serious: Yes (Other)
  Sender: FDA-Public Use
  Company Number: PE-NOVARTISPH-NVSC2021PE248524

PATIENT
  Age: 39 Year
  Sex: Female

DRUGS (1)
  1. ELTROMBOPAG OLAMINE [Suspect]
     Active Substance: ELTROMBOPAG OLAMINE
     Indication: Immune thrombocytopenia
     Dosage: 50 MG, QD
     Route: 048
     Dates: start: 20201013

REACTIONS (1)
  - Cervix carcinoma [Unknown]

NARRATIVE: CASE EVENT DATE: 20210801
